FAERS Safety Report 8904134 (Version 1)
Quarter: 2012Q4

REPORT INFORMATION
  Report Type: 
  Country: US (occurrence: US)
  Receive Date: 20121113
  Receipt Date: 20121113
  Transmission Date: 20130627
  Serious: No
  Sender: FDA-Public Use
  Company Number: US-ASTRAZENECA-2012SE83193

PATIENT
  Age: 37 Year
  Sex: Female
  Weight: 90.7 kg

DRUGS (5)
  1. PRILOSEC [Suspect]
     Indication: GASTROOESOPHAGEAL REFLUX DISEASE
     Route: 048
     Dates: end: 2004
  2. NEXIUM [Suspect]
     Indication: GASTROOESOPHAGEAL REFLUX DISEASE
     Route: 048
     Dates: start: 2004
  3. XANAX [Concomitant]
     Indication: SLEEP DISORDER THERAPY
  4. VICODEN [Concomitant]
     Indication: BACK PAIN
  5. ALLERGY MEDICATION [Concomitant]

REACTIONS (3)
  - Sleep disorder due to a general medical condition [Unknown]
  - Dyspepsia [Unknown]
  - Drug dose omission [Unknown]
